FAERS Safety Report 19615316 (Version 1)
Quarter: 2021Q3

REPORT INFORMATION
  Report Type: Spontaneous
  Country: CA (occurrence: CA)
  Receive Date: 20210727
  Receipt Date: 20210727
  Transmission Date: 20211014
  Serious: Yes (Other)
  Sender: FDA-Public Use
  Company Number: CA-JNJFOC-20210750677

PATIENT
  Age: 33 Year
  Sex: Female
  Weight: 83 kg

DRUGS (1)
  1. INFLIXIMAB, RECOMBINANT [Suspect]
     Active Substance: INFLIXIMAB
     Indication: CROHN^S DISEASE
     Route: 042

REACTIONS (5)
  - Dyspnoea [Recovered/Resolved]
  - Off label use [Recovered/Resolved]
  - Condition aggravated [Recovered/Resolved]
  - Flushing [Recovered/Resolved]
  - Inappropriate schedule of product administration [Recovered/Resolved]
